FAERS Safety Report 6682023-5 (Version None)
Quarter: 2010Q2

REPORT INFORMATION
  Report Type: 
  Country: None (occurrence: None)
  Receive Date: 20100414
  Receipt Date: 20100414
  Transmission Date: 20101027
  Serious: Yes (Other)
  Sender: FDA-Public Use
  Company Number: None

PATIENT
  Age: 62 Year
  Sex: Male
  Weight: 63.5036 kg

DRUGS (1)
  1. OMEPRAZOLE [Suspect]
     Indication: GASTROOESOPHAGEAL REFLUX DISEASE
     Dosage: 40 MG ONCE A DAY PO
     Route: 048
     Dates: start: 20100103, end: 20100131

REACTIONS (2)
  - DRUG EFFECT DELAYED [None]
  - PRODUCT QUALITY ISSUE [None]
